FAERS Safety Report 10379958 (Version 2)
Quarter: 2014Q3

REPORT INFORMATION
  Report Type: Spontaneous
  Country: AR (occurrence: AR)
  Receive Date: 20140813
  Receipt Date: 20140912
  Transmission Date: 20150326
  Serious: Yes (Other)
  Sender: FDA-Public Use
  Company Number: AR-AMGEN-ARGSP2014061124

PATIENT
  Age: 52 Year
  Sex: Female

DRUGS (6)
  1. PREGABALIN. [Concomitant]
     Active Substance: PREGABALIN
     Indication: PAIN IN JAW
  2. PREGABALIN. [Concomitant]
     Active Substance: PREGABALIN
     Indication: HEADACHE
     Dosage: UNK
  3. PREGABALIN. [Concomitant]
     Active Substance: PREGABALIN
     Indication: MUSCLE CONTRACTURE
  4. ENBREL [Suspect]
     Active Substance: ETANERCEPT
     Indication: RHEUMATOID ARTHRITIS
     Dosage: 50 MG, WEEKLY
     Route: 065
     Dates: start: 20130507
  5. METHOTREXATE SODIUM. [Suspect]
     Active Substance: METHOTREXATE SODIUM
     Indication: RHEUMATOID ARTHRITIS
     Dosage: 15 MG, WEEKLY
     Route: 065
     Dates: start: 2011
  6. METHOTREXATE SODIUM. [Suspect]
     Active Substance: METHOTREXATE SODIUM
     Dosage: 7.5 MG, WEEKLY
     Route: 065
     Dates: end: 201405

REACTIONS (20)
  - Thyroid disorder [Not Recovered/Not Resolved]
  - Drug ineffective [Not Recovered/Not Resolved]
  - Trigeminal palsy [Unknown]
  - Blood triglycerides decreased [Unknown]
  - Headache [Not Recovered/Not Resolved]
  - Depression [Unknown]
  - Dry eye [Not Recovered/Not Resolved]
  - C-reactive protein decreased [Unknown]
  - Arthralgia [Recovered/Resolved]
  - Nuchal rigidity [Unknown]
  - Viral infection [Not Recovered/Not Resolved]
  - Xerophthalmia [Unknown]
  - Pain [Not Recovered/Not Resolved]
  - Dysphonia [Unknown]
  - Blood cholesterol decreased [Unknown]
  - Speech disorder [Not Recovered/Not Resolved]
  - Loss of consciousness [Unknown]
  - Liver disorder [Unknown]
  - Mental disorder [Unknown]
  - Pharyngitis [Not Recovered/Not Resolved]

NARRATIVE: CASE EVENT DATE: 2014
